FAERS Safety Report 19185480 (Version 2)
Quarter: 2021Q2

REPORT INFORMATION
  Report Type: Spontaneous
  Country: US (occurrence: US)
  Receive Date: 20210427
  Receipt Date: 20210602
  Transmission Date: 20210717
  Serious: No
  Sender: FDA-Public Use
  Company Number: US-PFIZER INC-2021419455

PATIENT
  Age: 69 Year
  Sex: Female

DRUGS (1)
  1. RUXIENCE [Suspect]
     Active Substance: RITUXIMAB-PVVR
     Dosage: UNK, EVERY TWO MONTHS FOR THE NEXT TWO YEARS

REACTIONS (2)
  - Off label use [Unknown]
  - Therapeutic response unexpected [Unknown]
